FAERS Safety Report 5066572-1 (Version None)
Quarter: 2006Q3

REPORT INFORMATION
  Report Type: 
  Country: None (occurrence: None)
  Receive Date: 20060717
  Receipt Date: 20050708
  Transmission Date: 20061208
  Serious: Yes (Other)
  Sender: FDA-Public Use
  Company Number: 2005-07-0414

PATIENT
  Age: 63 Year
  Sex: Female

DRUGS (3)
  1. INTEGRILIN [Suspect]
     Indication: ACUTE MYOCARDIAL INFARCTION
     Dosage: SEE IMAGE
     Route: 042
     Dates: start: 20050707, end: 20050707
  2. INTEGRILIN [Suspect]
     Indication: ACUTE MYOCARDIAL INFARCTION
     Dosage: SEE IMAGE
     Route: 042
     Dates: start: 20050707, end: 20050708
  3. LOVENOX [Suspect]
     Dates: end: 20050708

REACTIONS (1)
  - PLATELET COUNT DECREASED [None]
